FAERS Safety Report 9653450 (Version 1)
Quarter: 2013Q4

REPORT INFORMATION
  Report Type: Spontaneous
  Country: US (occurrence: None)
  Receive Date: 20131028
  Receipt Date: 20131028
  Transmission Date: 20140711
  Serious: Yes (Hospitalization)
  Sender: FDA-Public Use
  Company Number: 2013AP009179

PATIENT
  Age: 58 Year
  Sex: Male

DRUGS (1)
  1. LITHIUM CARBONATE CAPSULES [Suspect]
     Indication: SCHIZOPHRENIA, PARANOID TYPE

REACTIONS (7)
  - Nephropathy [None]
  - Hypothyroidism [None]
  - Weight decreased [None]
  - Polyuria [None]
  - Dehydration [None]
  - Lethargy [None]
  - Cachexia [None]
